FAERS Safety Report 15295397 (Version 1)
Quarter: 2018Q3

REPORT INFORMATION
  Report Type: Spontaneous
  Country: US (occurrence: US)
  Receive Date: 20180807
  Receipt Date: 20180807
  Transmission Date: 20181010
  Serious: Yes (Life-Threatening)
  Sender: FDA-Public Use
  Company Number: None

PATIENT
  Age: 84 Year
  Sex: Male
  Weight: 79 kg

DRUGS (2)
  1. HEPARIN 1000 UNITS/ML ? 30 ML VIAL [Concomitant]
     Dates: start: 20180725, end: 20180725
  2. HEPARIN [Suspect]
     Active Substance: HEPARIN SODIUM
     Indication: CARDIAC OPERATION
     Dosage: ?          OTHER FREQUENCY:TWICE;?
     Route: 040
     Dates: start: 20180725, end: 20180725

REACTIONS (2)
  - Hypotension [None]
  - Cardiac arrest [None]

NARRATIVE: CASE EVENT DATE: 20180725
